FAERS Safety Report 8390652-6 (Version None)
Quarter: 2012Q2

REPORT INFORMATION
  Report Type: 
  Country: None (occurrence: None)
  Receive Date: 20120529
  Receipt Date: 20120528
  Transmission Date: 20120825
  Serious: Yes (Hospitalization, Other)
  Sender: FDA-Public Use
  Company Number: PHFR2012IE001588

PATIENT
  Sex: Male

DRUGS (3)
  1. CLOZARIL [Suspect]
     Dosage: 150 MG, UNK
     Route: 048
  2. CLOZARIL [Suspect]
     Indication: SCHIZOPHRENIA
     Dosage: 325 MG, DAILY
     Route: 048
     Dates: start: 20090601
  3. CLOZARIL [Suspect]
     Dosage: 325 MG, UNK
     Route: 048
     Dates: end: 20120301

REACTIONS (5)
  - PEPTIC ULCER [None]
  - PULMONARY EMBOLISM [None]
  - SCHIZOAFFECTIVE DISORDER [None]
  - DEEP VEIN THROMBOSIS [None]
  - ULCER HAEMORRHAGE [None]
